FAERS Safety Report 25344537 (Version 1)
Quarter: 2025Q2

REPORT INFORMATION
  Report Type: Report from Study
  Country: FR (occurrence: FR)
  Receive Date: 20250521
  Receipt Date: 20250521
  Transmission Date: 20250716
  Serious: Yes (Hospitalization, Other)
  Sender: ABBVIE
  Company Number: FR-ABBVIE-6284603

PATIENT
  Age: 43 Year
  Sex: Female
  Weight: 60 kg

DRUGS (10)
  1. UPADACITINIB [Suspect]
     Active Substance: UPADACITINIB
     Indication: Crohn^s disease
     Route: 048
     Dates: start: 20240712, end: 20240729
  2. UPADACITINIB [Suspect]
     Active Substance: UPADACITINIB
     Indication: Crohn^s disease
     Route: 048
     Dates: start: 20240813, end: 20240821
  3. UPADACITINIB [Suspect]
     Active Substance: UPADACITINIB
     Indication: Crohn^s disease
     Route: 048
     Dates: start: 20240925, end: 20241231
  4. UPADACITINIB [Suspect]
     Active Substance: UPADACITINIB
     Indication: Crohn^s disease
     Route: 048
     Dates: start: 20250101
  5. PHLOROGLUCINOL [Concomitant]
     Active Substance: PHLOROGLUCINOL
     Indication: Crohn^s disease
     Route: 048
     Dates: start: 20240821
  6. TRAMADOL [Concomitant]
     Active Substance: TRAMADOL
     Indication: Crohn^s disease
     Route: 048
     Dates: start: 20240821
  7. ENOXAPARIN SODIUM [Concomitant]
     Active Substance: ENOXAPARIN SODIUM
     Indication: Anticoagulant therapy
     Route: 058
     Dates: start: 20250110, end: 20250130
  8. AUGMENTIN [Concomitant]
     Active Substance: AMOXICILLIN\CLAVULANATE POTASSIUM
     Indication: Crohn^s disease
     Route: 048
     Dates: start: 20250113, end: 20250206
  9. POLYETHYLENE GLYCOLS [Concomitant]
     Active Substance: POLYETHYLENE GLYCOLS
     Indication: Crohn^s disease
     Dosage: 1 SACHET
     Route: 048
     Dates: start: 20250110
  10. ACETAMINOPHEN [Concomitant]
     Active Substance: ACETAMINOPHEN
     Indication: Escherichia bacteraemia
     Route: 048
     Dates: start: 20240730

REACTIONS (1)
  - Stenosis [Not Recovered/Not Resolved]

NARRATIVE: CASE EVENT DATE: 20250220
